FAERS Safety Report 11029716 (Version 1)
Quarter: 2015Q2

REPORT INFORMATION
  Report Type: Spontaneous
  Country: US (occurrence: None)
  Receive Date: 20150413
  Receipt Date: 20150413
  Transmission Date: 20150821
  Serious: No
  Sender: FDA-Public Use
  Company Number: None

PATIENT
  Age: 23 Year
  Sex: Female
  Weight: 72.58 kg

DRUGS (2)
  1. A AND D NOS [Suspect]
     Active Substance: DIMETHICONE\ZINC OXIDE OR PETROLATUM
     Indication: TATTOO
     Dosage: AS NEEDED APPLIED TO A SURFACE, USUALLY THE SKIN
     Route: 061
     Dates: start: 20150405, end: 20150410
  2. BIRTH CONTROL [Concomitant]
     Active Substance: UNSPECIFIED INGREDIENT

REACTIONS (3)
  - Rash pruritic [None]
  - Application site rash [None]
  - Rash [None]

NARRATIVE: CASE EVENT DATE: 20150405
